FAERS Safety Report 9516569 (Version 2)
Quarter: 2014Q1

REPORT INFORMATION
  Report Type: Spontaneous
  Country: US (occurrence: None)
  Receive Date: 20130305
  Receipt Date: 20140306
  Transmission Date: 20141002
  Serious: Yes (Other)
  Sender: FDA-Public Use
  Company Number: 163-21880-12121434

PATIENT
  Age: 64 Year
  Sex: Male

DRUGS (3)
  1. REVLIMID (LENALIDOMIDE) (CAPSULES) [Suspect]
     Indication: ACUTE MYELOID LEUKAEMIA
     Dosage: 10 MG, 21 IN 28 D, PO
     Route: 048
     Dates: start: 201105, end: 2011
  2. LORAZEPAM (LORAZEPAM) [Concomitant]
  3. METOPROLOL (METOPROLOL) [Concomitant]

REACTIONS (1)
  - Full blood count decreased [None]
